FAERS Safety Report 6864963-7 (Version None)
Quarter: 2010Q3

REPORT INFORMATION
  Report Type: 
  Country: None (occurrence: None)
  Receive Date: 20100721
  Receipt Date: 20080410
  Transmission Date: 20110219
  Serious: No
  Sender: FDA-Public Use
  Company Number: US-PFIZER INC-2008032769

PATIENT
  Age: 50 Year
  Sex: Male
  Weight: 88 kg

DRUGS (4)
  1. CHANTIX [Suspect]
     Indication: SMOKING CESSATION THERAPY
     Dates: start: 20080101, end: 20080401
  2. AMLODIPINE [Suspect]
     Indication: HYPERTENSION
  3. QUINAPRIL HCL [Suspect]
     Indication: HYPERTENSION
  4. GLUCOVANCE [Concomitant]
     Indication: DIABETES MELLITUS

REACTIONS (1)
  - CHEST PAIN [None]
